FAERS Safety Report 9646038 (Version 1)
Quarter: 2013Q4

REPORT INFORMATION
  Report Type: Spontaneous
  Country: TW (occurrence: TW)
  Receive Date: 20131025
  Receipt Date: 20131025
  Transmission Date: 20140711
  Serious: Yes (Death, Hospitalization)
  Sender: FDA-Public Use
  Company Number: TW-PFIZER INC-2013302244

PATIENT
  Age: 40 Year
  Sex: Male

DRUGS (4)
  1. GEODON [Suspect]
     Indication: SCHIZOPHRENIA
     Dosage: 120 MG, DAILY
     Route: 048
  2. GEODON [Suspect]
     Dosage: 60 MG, THREE TIMES A DAY
     Route: 048
  3. ATIVAN [Concomitant]
     Dosage: UNK
  4. EURODIN [Concomitant]

REACTIONS (2)
  - Sudden death [Fatal]
  - Schizophrenia [Unknown]
